FAERS Safety Report 7528378-0 (Version None)
Quarter: 2011Q2

REPORT INFORMATION
  Report Type: 
  Country: None (occurrence: None)
  Receive Date: 20110607
  Receipt Date: 20100113
  Transmission Date: 20111010
  Serious: No
  Sender: FDA-Public Use
  Company Number: US-ASTRAZENECA-2010SE05678

PATIENT
  Age: 28 Year
  Sex: Male

DRUGS (1)
  1. PRILOSEC OTC [Suspect]
     Indication: DYSPEPSIA
     Route: 048
     Dates: start: 20080101

REACTIONS (10)
  - WEIGHT DECREASED [None]
  - DIARRHOEA [None]
  - DYSPEPSIA [None]
  - WEIGHT INCREASED [None]
  - LIVER INJURY [None]
  - GALLBLADDER INJURY [None]
  - CONDITION AGGRAVATED [None]
  - DRUG DEPENDENCE [None]
  - FATIGUE [None]
  - MALAISE [None]
